FAERS Safety Report 25948925 (Version 1)
Quarter: 2025Q4

REPORT INFORMATION
  Report Type: Spontaneous
  Country: CA (occurrence: CA)
  Receive Date: 20251022
  Receipt Date: 20251022
  Transmission Date: 20260118
  Serious: Yes (Other)
  Sender: PFIZER
  Company Number: CA-PFIZER INC-202500206962

PATIENT
  Age: 29 Year
  Sex: Female

DRUGS (4)
  1. ABRILADA [Suspect]
     Active Substance: ADALIMUMAB-AFZB
     Indication: Ankylosing spondylitis
     Dosage: 40 MG, EVERY 2 WEEKS
     Route: 058
     Dates: start: 20240923
  2. VITAMIN B12 [Concomitant]
     Active Substance: CYANOCOBALAMIN
     Dosage: 1 DF
  3. BUPROPION [Concomitant]
     Active Substance: BUPROPION
     Dosage: 1 DF
  4. LEVOTHYROXINE [Concomitant]
     Active Substance: LEVOTHYROXINE
     Dosage: 1 DF

REACTIONS (5)
  - Hypersensitivity [Unknown]
  - Angioedema [Unknown]
  - Dermatitis atopic [Unknown]
  - Dermatitis contact [Unknown]
  - Immune system disorder [Unknown]

NARRATIVE: CASE EVENT DATE: 20241101
